FAERS Safety Report 9923971 (Version 1)
Quarter: 2014Q1

REPORT INFORMATION
  Report Type: Spontaneous
  Country: GB (occurrence: GB)
  Receive Date: 20140225
  Receipt Date: 20140225
  Transmission Date: 20141002
  Serious: Yes (Other)
  Sender: FDA-Public Use
  Company Number: PHHY2014GB020890

PATIENT
  Age: 70 Year
  Sex: Male

DRUGS (2)
  1. SIMVASTATIN [Suspect]
     Indication: HYPERLIPIDAEMIA
     Dosage: 40 MG, UNK
  2. METHOTREXATE [Concomitant]
     Indication: PSORIASIS

REACTIONS (6)
  - Gastrointestinal motility disorder [Recovered/Resolved]
  - Bowel movement irregularity [Recovered/Resolved]
  - Abdominal discomfort [Recovered/Resolved]
  - Intestinal dilatation [Recovered/Resolved]
  - Volvulus [Recovered/Resolved]
  - Megacolon [Recovered/Resolved]
